FAERS Safety Report 23061187 (Version 1)
Quarter: 2023Q4

REPORT INFORMATION
  Report Type: Spontaneous
  Country: GB (occurrence: GB)
  Receive Date: 20231013
  Receipt Date: 20231013
  Transmission Date: 20240110
  Serious: Yes (Death, Hospitalization, Other)
  Sender: FDA-Public Use
  Company Number: GB-Hikma Pharmaceuticals USA Inc.-GB-H14001-22-01189

PATIENT
  Age: 72 Year
  Sex: Female
  Weight: 62.4 kg

DRUGS (3)
  1. CARBOPLATIN [Suspect]
     Active Substance: CARBOPLATIN
     Indication: Anal cancer
     Dosage: AUC 5 DAY 1 OF EACH 28-DAY CYCLE; ;
     Route: 050
     Dates: start: 20211216
  2. PACLITAXEL [Suspect]
     Active Substance: PACLITAXEL
     Indication: Anal cancer
     Dosage: 80 MILLIGRAM/SQ. METER DAYS 1, 8 AND 15 OF EACH 28-DAY CYCLE; ;
     Route: 050
     Dates: start: 20211216
  3. LOPERAMIDE [Concomitant]
     Active Substance: LOPERAMIDE
     Indication: Product used for unknown indication
     Dosage: UNKNOWN
     Route: 050
     Dates: start: 20211222, end: 20220418

REACTIONS (27)
  - Disease progression [Fatal]
  - Condition aggravated [Fatal]
  - Nausea [Fatal]
  - Vomiting [Fatal]
  - Asthenia [Fatal]
  - Dizziness [Fatal]
  - Feeling abnormal [Fatal]
  - Fibrosis [Fatal]
  - Cryptitis [Fatal]
  - Gastrointestinal toxicity [Fatal]
  - Diarrhoea haemorrhagic [Fatal]
  - Proctitis [Fatal]
  - Gastrointestinal angiectasia [Fatal]
  - Adverse event [Fatal]
  - Colitis [Fatal]
  - Infection [Fatal]
  - Pneumonia [Fatal]
  - Lower respiratory tract infection [Fatal]
  - Megacolon [Fatal]
  - C-reactive protein increased [Fatal]
  - Lung disorder [Fatal]
  - Pulmonary mass [Fatal]
  - Metastases to lung [Fatal]
  - Metastases to pancreas [Fatal]
  - Neoplasm progression [Fatal]
  - Pancreatic mass [Fatal]
  - Diarrhoea [Recovered/Resolved]

NARRATIVE: CASE EVENT DATE: 20220411
